FAERS Safety Report 9382285 (Version 1)
Quarter: 2013Q3

REPORT INFORMATION
  Report Type: Spontaneous
  Country: US (occurrence: None)
  Receive Date: 20130702
  Receipt Date: 20130702
  Transmission Date: 20140515
  Serious: Yes (Life-Threatening)
  Sender: FDA-Public Use
  Company Number: None

PATIENT
  Age: 42 Year
  Sex: Female
  Weight: 73.48 kg

DRUGS (1)
  1. LAMICTAL XR [Suspect]
     Indication: EPILEPSY
     Dosage: 250 MG BID PO
     Route: 048
     Dates: start: 2005

REACTIONS (3)
  - Confusional state [None]
  - Hallucination [None]
  - Convulsion [None]
